FAERS Safety Report 8546033-5 (Version None)
Quarter: 2012Q3

REPORT INFORMATION
  Report Type: 
  Country: None (occurrence: None)
  Receive Date: 20120727
  Receipt Date: 20070801
  Transmission Date: 20120928
  Serious: Yes (Other)
  Sender: FDA-Public Use
  Company Number: CO-PFIZER INC-2012179014

PATIENT
  Age: 73 Year
  Sex: Female

DRUGS (5)
  1. ACCURETIC [Suspect]
     Dosage: 20 MG, 1X/DAY
  2. METOPROLOL [Concomitant]
     Indication: HYPERTENSION
     Dosage: 50 MG, 2X/DAY
  3. LIPITOR [Suspect]
     Indication: DYSLIPIDAEMIA
     Dosage: 20 MG, 1X/DAY
  4. ALPRAZOLAM [Concomitant]
     Dosage: 0.25 MG, 1X/DAY
  5. GLIBENCLAMIDE [Concomitant]
     Indication: DIABETES MELLITUS
     Dosage: 5 MG, 2X/DAY

REACTIONS (2)
  - SPUTUM PURULENT [None]
  - INFLUENZA [None]
